FAERS Safety Report 8270815 (Version 3)
Quarter: 2014Q1

REPORT INFORMATION
  Report Type: Report from Study
  Country: SE (occurrence: SE)
  Receive Date: 20111201
  Receipt Date: 20140212
  Transmission Date: 20141002
  Serious: Yes (Hospitalization)
  Sender: FDA-Public Use
  Company Number: SE-B.I. PHARMACEUTICALS,INC./RIDGEFIELD-2011-RD-00089DE

PATIENT
  Age: 73 Year
  Sex: Male
  Weight: 77.4 kg

DRUGS (2)
  1. BI 1356 [Suspect]
     Indication: TYPE 2 DIABETES MELLITUS
     Route: 048
     Dates: start: 20110303, end: 20110502
  2. BI 1356 [Suspect]
     Route: 048
     Dates: start: 20110513

REACTIONS (1)
  - Retinal migraine [Recovered/Resolved]
